FAERS Safety Report 9915960 (Version 1)
Quarter: 2014Q1

REPORT INFORMATION
  Report Type: Spontaneous
  Country: US (occurrence: None)
  Receive Date: 20140219
  Receipt Date: 20140219
  Transmission Date: 20141002
  Serious: No
  Sender: FDA-Public Use
  Company Number: None

PATIENT
  Age: 73 Year
  Sex: Male
  Weight: 83.46 kg

DRUGS (1)
  1. LABETALOL [Suspect]
     Indication: HYPERTENSION
     Route: 048
     Dates: start: 20140117, end: 20140214

REACTIONS (3)
  - Night sweats [None]
  - Semen analysis abnormal [None]
  - Fear [None]
